FAERS Safety Report 6083708-4 (Version None)
Quarter: 2009Q1

REPORT INFORMATION
  Report Type: 
  Country: None (occurrence: None)
  Receive Date: 20090217
  Receipt Date: 20090217
  Transmission Date: 20090719
  Serious: Yes (Other)
  Sender: FDA-Public Use
  Company Number: None

PATIENT
  Sex: Female
  Weight: 74.3899 kg

DRUGS (2)
  1. SOTALOL HCL [Suspect]
     Indication: CHRONIC OBSTRUCTIVE PULMONARY DISEASE
     Dosage: 120 MG ONCE TAB QD PO
     Route: 048
     Dates: start: 20050901, end: 20050910
  2. ATENOLOL [Suspect]
     Indication: CARDIAC FAILURE CONGESTIVE
     Dosage: 50 MG ONCE TAB QD PO
     Route: 048
     Dates: start: 20050911, end: 20050920

REACTIONS (1)
  - HEART RATE ABNORMAL [None]
